FAERS Safety Report 6993257-4 (Version None)
Quarter: 2010Q3

REPORT INFORMATION
  Report Type: 
  Country: None (occurrence: None)
  Receive Date: 20100917
  Receipt Date: 20100405
  Transmission Date: 20110219
  Serious: No
  Sender: FDA-Public Use
  Company Number: US-ASTRAZENECA-2010SE14831

PATIENT
  Age: 49 Year
  Sex: Male

DRUGS (9)
  1. SEROQUEL [Suspect]
     Indication: BIPOLAR DISORDER
     Route: 048
     Dates: start: 20070101
  2. SEROQUEL [Suspect]
     Indication: PARANOIA
     Route: 048
     Dates: start: 20070101
  3. SEROQUEL [Suspect]
     Route: 048
     Dates: start: 20100310
  4. SEROQUEL [Suspect]
     Route: 048
     Dates: start: 20100310
  5. CELEXA [Concomitant]
  6. LISINOPRIL AND HYDROCHLOROTHIAZIDE [Concomitant]
     Indication: HYPERTENSION
  7. SIMVASTATIN [Concomitant]
     Indication: BLOOD CHOLESTEROL
  8. M.V.I. [Concomitant]
  9. ASPIRIN [Concomitant]

REACTIONS (5)
  - ANGER [None]
  - DRUG DOSE OMISSION [None]
  - INSOMNIA [None]
  - PARANOIA [None]
  - WEIGHT DECREASED [None]
